FAERS Safety Report 8479987-6 (Version None)
Quarter: 2012Q2

REPORT INFORMATION
  Report Type: 
  Country: None (occurrence: None)
  Receive Date: 20120615
  Receipt Date: 20120606
  Transmission Date: 20120825
  Serious: Yes (Hospitalization)
  Sender: FDA-Public Use
  Company Number: 2012SP031147

PATIENT
  Age: 60 Year
  Sex: Male

DRUGS (3)
  1. VICTRELIS [Suspect]
     Indication: HEPATITIS C
     Dosage: 200 MG;TID;PO
     Route: 048
     Dates: start: 20120301, end: 20120605
  2. PEG-INTRON [Suspect]
     Indication: PRODUCT USED FOR UNKNOWN INDICATION
     Dates: start: 20120201, end: 20120605
  3. REBETOL [Suspect]
     Indication: PRODUCT USED FOR UNKNOWN INDICATION
     Dates: start: 20120201, end: 20120605

REACTIONS (4)
  - NO THERAPEUTIC RESPONSE [None]
  - DEPRESSIVE SYMPTOM [None]
  - BLOOD POTASSIUM DECREASED [None]
  - CHEST PAIN [None]
